FAERS Safety Report 10063044 (Version 2)
Quarter: 2014Q2

REPORT INFORMATION
  Report Type: Report from Study
  Country: JP (occurrence: JP)
  Receive Date: 20140407
  Receipt Date: 20140526
  Transmission Date: 20141212
  Serious: Yes (Other)
  Sender: FDA-Public Use
  Company Number: JP-TAKEDA-2014TJP004637

PATIENT
  Age: 58 Year
  Sex: Female
  Weight: 58.1 kg

DRUGS (5)
  1. ALOGLIPTIN [Suspect]
     Indication: TYPE 2 DIABETES MELLITUS
     Dosage: 25 MG, QD
     Route: 048
     Dates: start: 20120402
  2. METGLUCO [Concomitant]
     Indication: TYPE 2 DIABETES MELLITUS
     Dosage: 2250 MG, 1 DAYS
     Route: 048
  3. DIOVAN [Concomitant]
     Dosage: UNK
     Route: 048
  4. NEWTOLIDE [Concomitant]
     Dosage: UNK
     Route: 048
  5. ATELEC [Concomitant]
     Dosage: UNK
     Route: 048

REACTIONS (1)
  - Rib fracture [Recovered/Resolved]
